FAERS Safety Report 6372071-7 (Version None)
Quarter: 2009Q3

REPORT INFORMATION
  Report Type: 
  Country: None (occurrence: None)
  Receive Date: 20090917
  Receipt Date: 20090904
  Transmission Date: 20100115
  Serious: Yes (Life-Threatening)
  Sender: FDA-Public Use
  Company Number: ADR15902009

PATIENT
  Age: 31 Year
  Sex: Male

DRUGS (8)
  1. CITALOPRAM 20MG        (MFR: UNKNOWN) [Suspect]
     Indication: DEPRESSION
     Route: 048
     Dates: start: 20081101
  2. ATAZANAVIR [Concomitant]
     Indication: ANXIETY
  3. EFAVIRENZ [Concomitant]
  4. INHALERS [Concomitant]
  5. LAMIVUDINE [Concomitant]
  6. RITONAVIR [Concomitant]
  7. TENOFOVIR [Concomitant]
  8. TRUVADA [Concomitant]

REACTIONS (3)
  - ALCOHOL INTERACTION [None]
  - MEMORY IMPAIRMENT [None]
  - SOMNAMBULISM [None]
